FAERS Safety Report 7927664-X (Version None)
Quarter: 2011Q4

REPORT INFORMATION
  Report Type: 
  Country: None (occurrence: None)
  Receive Date: 20111118
  Receipt Date: 20111114
  Transmission Date: 20120403
  Serious: Yes (Hospitalization)
  Sender: FDA-Public Use
  Company Number: US-SANOFI-AVENTIS-2011SA075128

PATIENT

DRUGS (1)
  1. LANTUS [Suspect]
     Dosage: 20 TO 30 UNITS AT BEDTIME
     Route: 058

REACTIONS (1)
  - GASTROINTESTINAL DISORDER [None]
